FAERS Safety Report 6282577-7 (Version None)
Quarter: 2009Q4

REPORT INFORMATION
  Report Type: 
  Country: None (occurrence: None)
  Receive Date: 20090722
  Receipt Date: 20090722
  Transmission Date: 20100525
  Serious: No
  Sender: FDA-Public Use
  Company Number: None

PATIENT
  Age: 48 Year
  Sex: Male

DRUGS (3)
  1. TEMODAR [Suspect]
     Dates: start: 20051115, end: 20060421
  2. PREVACID [Concomitant]
  3. METOPROLOL TARTRATE [Concomitant]

REACTIONS (3)
  - CHRONIC HEPATITIS [None]
  - LIVER INJURY [None]
  - RUPTURED CEREBRAL ANEURYSM [None]
